FAERS Safety Report 7782858-1 (Version None)
Quarter: 2011Q3

REPORT INFORMATION
  Report Type: 
  Country: None (occurrence: None)
  Receive Date: 20110926
  Receipt Date: 20110912
  Transmission Date: 20111222
  Serious: Yes (Other)
  Sender: FDA-Public Use
  Company Number: 2011-295

PATIENT
  Age: 41 Year
  Sex: Female
  Weight: 75 kg

DRUGS (11)
  1. BUPIVACAINE HCL [Suspect]
     Dosage: MG, ONCE/HOUR, INTRATHECAL
     Route: 037
  2. MORPHINE SULFATE [Suspect]
     Dosage: MG, ONCE/HOUR, INTRATHECAL
     Route: 037
  3. PRIALT [Suspect]
     Indication: PAIN IN EXTREMITY
     Dosage: UG, ONCE/HOUR, INTRATHECAL; 0.05 UG, ONCE/HOUR, INTRATHECAL
     Route: 037
     Dates: start: 20100222
  4. PRIALT [Suspect]
     Indication: FEMORAL NERVE INJURY
     Dosage: UG, ONCE/HOUR, INTRATHECAL; 0.05 UG, ONCE/HOUR, INTRATHECAL
     Route: 037
     Dates: start: 20100222
  5. PRIALT [Suspect]
     Indication: NEURALGIA
     Dosage: UG, ONCE/HOUR, INTRATHECAL; 0.05 UG, ONCE/HOUR, INTRATHECAL
     Route: 037
     Dates: start: 20100222
  6. PRIALT [Suspect]
     Indication: PAIN IN EXTREMITY
     Dosage: UG, ONCE/HOUR, INTRATHECAL; 0.05 UG, ONCE/HOUR, INTRATHECAL
     Route: 037
     Dates: end: 20100324
  7. PRIALT [Suspect]
     Indication: FEMORAL NERVE INJURY
     Dosage: UG, ONCE/HOUR, INTRATHECAL; 0.05 UG, ONCE/HOUR, INTRATHECAL
     Route: 037
     Dates: end: 20100324
  8. PRIALT [Suspect]
     Indication: NEURALGIA
     Dosage: UG, ONCE/HOUR, INTRATHECAL; 0.05 UG, ONCE/HOUR, INTRATHECAL
     Route: 037
     Dates: end: 20100324
  9. FENTANYL [Concomitant]
  10. BETA BLOCKING AGENTS [Concomitant]
  11. DILAUDID [Suspect]
     Dosage: MG, ONCE/HOUR, INTRATHECAL
     Route: 037

REACTIONS (3)
  - CHEST PAIN [None]
  - VOMITING [None]
  - DYSPNOEA [None]
